FAERS Safety Report 6792906-3 (Version None)
Quarter: 2010Q2

REPORT INFORMATION
  Report Type: 
  Country: None (occurrence: None)
  Receive Date: 20100624
  Receipt Date: 20081027
  Transmission Date: 20101027
  Serious: No
  Sender: FDA-Public Use
  Company Number: US-PFIZER INC-2008090683

PATIENT
  Sex: Female

DRUGS (4)
  1. DEPO-PROVERA SUSPENSION/INJ [Suspect]
     Indication: OFF LABEL USE
     Dates: start: 20080101
  2. DEPO-PROVERA SUSPENSION/INJ [Suspect]
     Indication: DYSMENORRHOEA
  3. DOXYCYCLINE [Concomitant]
     Indication: PAIN
  4. BENZACLIN [Concomitant]
     Indication: PAIN

REACTIONS (3)
  - DEPRESSION [None]
  - HORMONE LEVEL ABNORMAL [None]
  - WEIGHT INCREASED [None]
